FAERS Safety Report 10548335 (Version 1)
Quarter: 2014Q4

REPORT INFORMATION
  Report Type: Spontaneous
  Country: US (occurrence: None)
  Receive Date: 20141015
  Receipt Date: 20141015
  Transmission Date: 20150529
  Serious: No
  Sender: FDA-Public Use
  Company Number: 2014US003594

PATIENT
  Age: 24 Year
  Sex: Female

DRUGS (1)
  1. ICLUSIG [Suspect]
     Active Substance: PONATINIB
     Indication: CHRONIC MYELOID LEUKAEMIA
     Route: 048

REACTIONS (7)
  - Foreign body sensation in eyes [None]
  - Eyelid pain [None]
  - Eye pain [None]
  - Abdominal discomfort [None]
  - Headache [None]
  - Eyelid disorder [None]
  - Abdominal pain [None]
